FAERS Safety Report 17300822 (Version 1)
Quarter: 2020Q1

REPORT INFORMATION
  Report Type: Report from Study
  Country: DE (occurrence: DE)
  Receive Date: 20200122
  Receipt Date: 20200122
  Transmission Date: 20200409
  Serious: Yes (Hospitalization)
  Sender: FDA-Public Use
  Company Number: DE-PFIZER INC-2020026245

PATIENT
  Sex: Male

DRUGS (33)
  1. SULFASALAZINE. [Suspect]
     Active Substance: SULFASALAZINE
     Indication: ANKYLOSING SPONDYLITIS
     Dosage: 500 MG, BID
     Route: 048
     Dates: start: 20171001
  2. COSENTYX [Suspect]
     Active Substance: SECUKINUMAB
     Dosage: 150 MG, SINGLE
     Dates: start: 20190223
  3. COSENTYX [Suspect]
     Active Substance: SECUKINUMAB
     Dosage: 150 MG, SINGLE
     Dates: start: 20190323
  4. FAMPRIDINE [Concomitant]
     Active Substance: DALFAMPRIDINE
     Dosage: UNK 10MG,0.5-0-0.5
     Route: 048
     Dates: start: 20190317
  5. MIRTAZAPINE. [Concomitant]
     Active Substance: MIRTAZAPINE
     Dosage: 15 MG, QD
     Route: 048
  6. FAMPRIDINE [Concomitant]
     Active Substance: DALFAMPRIDINE
     Indication: PARKINSON^S DISEASE
     Dosage: 1 DF (10 MG), BID
     Route: 048
     Dates: start: 201809, end: 20190316
  7. BISOPROLOL [Concomitant]
     Active Substance: BISOPROLOL
     Indication: HYPERTENSION
     Dosage: 1.5 DF (1 TABLET AT MORNING, 1/2 TABLET AT NIGHT), BID
     Route: 048
  8. DOMPERIDONE [Concomitant]
     Active Substance: DOMPERIDONE
     Dosage: 1 DF (10MG), TID
     Route: 048
     Dates: start: 20190317
  9. ACETYLSALICYLIC ACID [Concomitant]
     Active Substance: ASPIRIN
     Indication: CORONARY ARTERY DISEASE
     Dosage: 100 MG, QD
     Route: 048
  10. COSENTYX [Suspect]
     Active Substance: SECUKINUMAB
     Dosage: 150 MG, SINGLE
     Dates: start: 20190123
  11. COSENTYX [Suspect]
     Active Substance: SECUKINUMAB
     Dosage: 150 MG, SINGLE
     Route: 065
     Dates: start: 20181202
  12. COSENTYX [Suspect]
     Active Substance: SECUKINUMAB
     Dosage: 150 MG, SINGLE
     Dates: start: 20190420
  13. TILIDIN [Concomitant]
     Active Substance: NALOXONE HYDROCHLORIDE\TILIDINE HYDROCHLORIDE
     Indication: SPINAL STENOSIS
     Dosage: 1 DF, QD
     Route: 048
     Dates: start: 201708
  14. DOMPERIDONE [Concomitant]
     Active Substance: DOMPERIDONE
     Indication: PARKINSON^S DISEASE
     Dosage: 2 DF (10MG), TID
     Route: 048
     Dates: start: 201809, end: 20190316
  15. SULFASALAZINE. [Suspect]
     Active Substance: SULFASALAZINE
     Dosage: 500 MG BID (1-0-1)
     Route: 048
  16. COSENTYX [Suspect]
     Active Substance: SECUKINUMAB
     Indication: ANKYLOSING SPONDYLITIS
     Dosage: 150 MG, SINGLE
     Dates: start: 20181023
  17. COSENTYX [Suspect]
     Active Substance: SECUKINUMAB
     Dosage: 150 MG, SINGLE
     Dates: start: 20181209
  18. COSENTYX [Suspect]
     Active Substance: SECUKINUMAB
     Dosage: 150 MG, SINGLE
     Dates: start: 20190504
  19. LEVODOPA [Concomitant]
     Active Substance: LEVODOPA
     Indication: PARKINSON^S DISEASE
     Dosage: 1 DF, TID (100/25MG 1-1-1)
     Route: 048
     Dates: start: 201809, end: 20190316
  20. LEVODOPA [Concomitant]
     Active Substance: LEVODOPA
     Dosage: 1.5 DF 2X/DAY AND 1DF 1X/DAY, (100/25MG 1.5-1-1.5)
     Route: 048
     Dates: start: 20190317, end: 20190927
  21. PANTOPRAZOLE [Concomitant]
     Active Substance: PANTOPRAZOLE
     Indication: GASTRITIS
     Dosage: 20 MG, QD
     Route: 048
  22. COSENTYX [Suspect]
     Active Substance: SECUKINUMAB
     Dosage: 150 MG, SINGLE
     Dates: start: 20190518
  23. TORASEMIDE [Concomitant]
     Active Substance: TORSEMIDE
     Indication: HYPERTENSION
     Dosage: 5 MG, BID
     Route: 048
  24. SIMVASTATIN. [Concomitant]
     Active Substance: SIMVASTATIN
     Indication: CORONARY ARTERY DISEASE
     Dosage: 0.5 DF (80 MG), QD
     Route: 048
  25. APIDRA [Concomitant]
     Active Substance: INSULIN GLULISINE
     Indication: DIABETES MELLITUS
     Dosage: UNK
     Route: 058
  26. ARCOXIA [Concomitant]
     Active Substance: ETORICOXIB
     Indication: ANKYLOSING SPONDYLITIS
     Dosage: 30 MG, QD
     Route: 048
     Dates: start: 20190104, end: 20190118
  27. SULFASALAZINE. [Suspect]
     Active Substance: SULFASALAZINE
     Dosage: 500 MG, BID (2-0-2)
     Route: 048
     Dates: start: 20190406, end: 20190627
  28. COSENTYX [Suspect]
     Active Substance: SECUKINUMAB
     Dosage: 150 MG, SINGLE
     Dates: start: 20181223
  29. COSENTYX [Suspect]
     Active Substance: SECUKINUMAB
     Dosage: 150 MG, SINGLE
     Dates: start: 20190406
  30. LEVODOPA [Concomitant]
     Active Substance: LEVODOPA
     Dosage: 1.5 DF, QID(100/25MG 1.5-1.5-1.5-1.5)
     Route: 048
     Dates: start: 20190928
  31. ENALAPRIL [Concomitant]
     Active Substance: ENALAPRIL
     Indication: HYPERTENSION
     Dosage: 10 MG, BID
     Route: 048
  32. LANTUS [Concomitant]
     Active Substance: INSULIN GLARGINE
     Indication: DIABETES MELLITUS
     Dosage: UNK
     Route: 058
  33. COSENTYX [Suspect]
     Active Substance: SECUKINUMAB
     Dosage: 150 MG, SINGLE
     Dates: start: 20181216

REACTIONS (2)
  - Rhinitis [Not Recovered/Not Resolved]
  - Pain [Recovered/Resolved]

NARRATIVE: CASE EVENT DATE: 201901
